FAERS Safety Report 23559448 (Version 1)
Quarter: 2024Q1

REPORT INFORMATION
  Report Type: Spontaneous
  Country: US (occurrence: None)
  Receive Date: 20240222
  Receipt Date: 20240222
  Transmission Date: 20240410
  Serious: No
  Sender: FDA-Public Use
  Company Number: None

PATIENT
  Age: 77 Year
  Sex: Male
  Weight: 74.12 kg

DRUGS (1)
  1. OFLOXACIN OTIC [Suspect]
     Active Substance: OFLOXACIN
     Dosage: FREQUENCY : TWICE A DAY;?
     Route: 001
     Dates: start: 20240118, end: 20240118

REACTIONS (3)
  - Instillation site vesicles [None]
  - Instillation site pruritus [None]
  - Therapy cessation [None]

NARRATIVE: CASE EVENT DATE: 20240218
